FAERS Safety Report 16221356 (Version 2)
Quarter: 2019Q2

REPORT INFORMATION
  Report Type: Report from Study
  Country: GB (occurrence: GB)
  Receive Date: 20190422
  Receipt Date: 20190423
  Transmission Date: 20190711
  Serious: Yes (Hospitalization)
  Sender: FDA-Public Use
  Company Number: GB-TEVA-2019-GB-1040219

PATIENT
  Age: 42 Year
  Sex: Female

DRUGS (1)
  1. COPAXONE [Suspect]
     Active Substance: GLATIRAMER ACETATE
     Indication: MULTIPLE SCLEROSIS
     Route: 058
     Dates: start: 20180926

REACTIONS (7)
  - Injection site pain [Recovering/Resolving]
  - Anxiety [Recovering/Resolving]
  - Injection site haemorrhage [Recovering/Resolving]
  - Panic reaction [Recovering/Resolving]
  - Injection site reaction [Unknown]
  - Injection site swelling [Recovering/Resolving]
  - Product use complaint [Unknown]

NARRATIVE: CASE EVENT DATE: 20190403
